FAERS Safety Report 23406147 (Version 3)
Quarter: 2024Q4

REPORT INFORMATION
  Report Type: Spontaneous
  Country: US (occurrence: US)
  Receive Date: 20240116
  Receipt Date: 20241031
  Transmission Date: 20250115
  Serious: No
  Sender: PFIZER
  Company Number: US-PFIZER INC-PV202400005214

PATIENT
  Age: 81 Year
  Sex: Male
  Weight: 92.971 kg

DRUGS (2)
  1. TIKOSYN [Suspect]
     Active Substance: DOFETILIDE
     Indication: Atrial fibrillation
     Dosage: 500MCG TWICE A DAY
     Dates: start: 20231217
  2. TIKOSYN [Suspect]
     Active Substance: DOFETILIDE
     Dosage: 500MCG TWICE A DAY
     Dates: start: 20231221

REACTIONS (1)
  - Hypoacusis [Unknown]
